FAERS Safety Report 5628328-8 (Version None)
Quarter: 2008Q1

REPORT INFORMATION
  Report Type: 
  Country: None (occurrence: None)
  Receive Date: 20080215
  Receipt Date: 20080211
  Transmission Date: 20080703
  Serious: Yes (Death)
  Sender: FDA-Public Use
  Company Number: ES-BOEHRINGER INGELHEIM GMBH, GERMANY-2008-DE-00875GD

PATIENT
  Sex: Male

DRUGS (2)
  1. PREDNISONE TAB [Suspect]
     Indication: CRYPTOGENIC ORGANISING PNEUMONIA
  2. CYCLOPHOSPHAMIDE [Suspect]
     Indication: CRYPTOGENIC ORGANISING PNEUMONIA

REACTIONS (4)
  - ACINETOBACTER INFECTION [None]
  - BACTERIAL SEPSIS [None]
  - DISEASE PROGRESSION [None]
  - RESPIRATORY FAILURE [None]
